FAERS Safety Report 13707169 (Version 2)
Quarter: 2017Q3

REPORT INFORMATION
  Report Type: Spontaneous
  Country: FR (occurrence: FR)
  Receive Date: 20170630
  Receipt Date: 20170706
  Transmission Date: 20171127
  Serious: Yes (Life-Threatening, Hospitalization)
  Sender: FDA-Public Use
  Company Number: FR-PFIZER INC-2017278368

PATIENT
  Sex: Male
  Weight: 3.3 kg

DRUGS (8)
  1. LEPONEX [Suspect]
     Active Substance: CLOZAPINE
     Dosage: 400 MG (FROM 400 MG TO 350 MG)
     Route: 064
  2. LEPONEX [Suspect]
     Active Substance: CLOZAPINE
     Dosage: 350 MG (FROM 400 MG TO 350 MG)
     Route: 064
  3. LEPONEX [Suspect]
     Active Substance: CLOZAPINE
     Dosage: 200 MG, UNK
     Route: 064
  4. PREDNISONE. [Concomitant]
     Active Substance: PREDNISONE
     Dosage: 20 MG, UNK
     Route: 064
  5. EFFEXOR [Suspect]
     Active Substance: VENLAFAXINE HYDROCHLORIDE
     Dosage: 37.5 MG, 3X/DAY
     Route: 064
  6. ZELITREX [Concomitant]
     Active Substance: VALACYCLOVIR HYDROCHLORIDE
     Dosage: 500 MG, 3X/DAY
     Route: 064
  7. VITAMIN A /00056001/ [Concomitant]
     Active Substance: RETINOL
     Route: 064
  8. LAMICTAL [Suspect]
     Active Substance: LAMOTRIGINE
     Dosage: 300 MG, DAILY
     Route: 064

REACTIONS (10)
  - Foetal heart rate disorder [Recovered/Resolved]
  - Somnolence neonatal [Recovered/Resolved]
  - Neonatal respiratory distress syndrome [Recovered/Resolved]
  - Maternal exposure during pregnancy [Recovered/Resolved]
  - Regurgitation [Recovered/Resolved]
  - Dystonia [Recovered/Resolved]
  - Oral candidiasis [Unknown]
  - Inguinal hernia [Unknown]
  - Joint hyperextension [Recovered/Resolved]
  - Opisthotonus [Recovered/Resolved]
